FAERS Safety Report 5661154-2 (Version None)
Quarter: 2008Q1

REPORT INFORMATION
  Report Type: 
  Country: None (occurrence: None)
  Receive Date: 20080305
  Receipt Date: 20070413
  Transmission Date: 20080703
  Serious: Yes (Hospitalization)
  Sender: FDA-Public Use
  Company Number: 2007RR-06600

PATIENT
  Age: 32 Year
  Sex: Female

DRUGS (2)
  1. FRUSEMIDE TEA        (FUROSEMIDE) UNKNOWN [Suspect]
     Dosage: 90 MG, ORAL
     Route: 048
  2. TEA          (TEA) [Concomitant]

REACTIONS (3)
  - BARTTER'S SYNDROME [None]
  - DRUG SCREEN POSITIVE [None]
  - PARALYSIS [None]
